FAERS Safety Report 6760401-3 (Version None)
Quarter: 2010Q2

REPORT INFORMATION
  Report Type: 
  Country: None (occurrence: None)
  Receive Date: 20100608
  Receipt Date: 20100525
  Transmission Date: 20101027
  Serious: Yes (Other)
  Sender: FDA-Public Use
  Company Number: GB-WATSON-2010-07380

PATIENT

DRUGS (1)
  1. FENTANYL CITRATE [Suspect]
     Indication: SURGERY
     Route: 065

REACTIONS (2)
  - APNOEA [None]
  - RESPIRATORY DEPRESSION [None]
